FAERS Safety Report 15681640 (Version 1)
Quarter: 2018Q4

REPORT INFORMATION
  Report Type: Spontaneous
  Country: BR (occurrence: BR)
  Receive Date: 20181203
  Receipt Date: 20181203
  Transmission Date: 20190205
  Serious: Yes (Hospitalization)
  Sender: FDA-Public Use
  Company Number: BR-MYLANLABS-2018M1088129

PATIENT
  Age: 87 Year
  Sex: Female

DRUGS (2)
  1. CILOSTAZOL. [Suspect]
     Active Substance: CILOSTAZOL
     Indication: PULMONARY EMBOLISM
     Dosage: DAILY
     Route: 065
  2. ASPIRIN                            /00002701/ [Suspect]
     Active Substance: ASPIRIN
     Indication: PULMONARY EMBOLISM
     Dosage: DAILY
     Route: 065

REACTIONS (6)
  - Aortic dissection [Recovered/Resolved]
  - Haematoma [Recovered/Resolved]
  - Hypertension [Unknown]
  - Gastric disorder [Recovered/Resolved]
  - Haematemesis [Unknown]
  - Pleural effusion [Unknown]
